FAERS Safety Report 23889292 (Version 1)
Quarter: 2024Q2

REPORT INFORMATION
  Report Type: Spontaneous
  Country: AU (occurrence: AU)
  Receive Date: 20240523
  Receipt Date: 20240523
  Transmission Date: 20240716
  Serious: No
  Sender: FDA-Public Use
  Company Number: AU-UCBSA-2024025206

PATIENT
  Sex: Male

DRUGS (2)
  1. NEUPRO [Suspect]
     Active Substance: ROTIGOTINE
     Indication: Product used for unknown indication
     Dosage: 6 MILLIGRAM, UNK
     Route: 062
  2. NEUPRO [Suspect]
     Active Substance: ROTIGOTINE
     Dosage: 6 MILLIGRAM, UNK
     Route: 062

REACTIONS (3)
  - Incorrect dose administered [Unknown]
  - Product adhesion issue [Unknown]
  - Product dose omission issue [Unknown]
